FAERS Safety Report 9176242 (Version 1)
Quarter: 2013Q1

REPORT INFORMATION
  Report Type: Spontaneous
  Country: US (occurrence: US)
  Receive Date: 20130321
  Receipt Date: 20130321
  Transmission Date: 20140127
  Serious: No
  Sender: FDA-Public Use
  Company Number: 2009BI015157

PATIENT
  Age: 57 None
  Sex: Female
  Weight: 121 kg

DRUGS (14)
  1. TYSABRI [Suspect]
     Indication: MULTIPLE SCLEROSIS
     Route: 042
     Dates: start: 20090319, end: 20090514
  2. NITROFURANTOIN [Concomitant]
  3. BACLOFEN [Concomitant]
     Route: 048
  4. BACLOFEN [Concomitant]
     Route: 048
  5. OXYBUTYNIN [Concomitant]
  6. ALEVE [Concomitant]
  7. AMOXICILLIN [Concomitant]
  8. ATENOLOL [Concomitant]
  9. ASPIRIN [Concomitant]
  10. BENADRYL [Concomitant]
  11. TYLENOL [Concomitant]
  12. IBUPROFEN [Concomitant]
  13. INDAPAMIDE [Concomitant]
  14. LOVASTATIN [Concomitant]

REACTIONS (13)
  - Gait disturbance [Unknown]
  - Muscular weakness [Unknown]
  - Decreased vibratory sense [Unknown]
  - Infusion related reaction [Unknown]
  - Muscle tightness [Recovered/Resolved]
  - Feeling abnormal [Recovered/Resolved]
  - Anxiety [Recovered/Resolved]
  - Stress [Unknown]
  - Postmenopause [Unknown]
  - Chest pain [Recovered/Resolved]
  - Chest discomfort [Recovered/Resolved]
  - Dizziness [Recovered/Resolved]
  - Constipation [Not Recovered/Not Resolved]
